FAERS Safety Report 18464204 (Version 1)
Quarter: 2020Q4

REPORT INFORMATION
  Report Type: Spontaneous
  Country: JP (occurrence: JP)
  Receive Date: 20201104
  Receipt Date: 20201104
  Transmission Date: 20210114
  Serious: No
  Sender: FDA-Public Use
  Company Number: JP-JAZZ-2020-JP-001700

PATIENT
  Age: 37 Year
  Sex: Male
  Weight: 79.2 kg

DRUGS (2)
  1. INOVAN [DOPAMINE HYDROCHLORIDE] [Concomitant]
  2. DEFITELIO [Suspect]
     Active Substance: DEFIBROTIDE SODIUM
     Indication: VENOOCCLUSIVE DISEASE
     Dosage: 25/MG/KG/24 HOURS
     Route: 042
     Dates: start: 20200108, end: 20200127

REACTIONS (2)
  - Off label use [Unknown]
  - Epistaxis [Recovered/Resolved]

NARRATIVE: CASE EVENT DATE: 20200108
